FAERS Safety Report 21588124 (Version 5)
Quarter: 2023Q2

REPORT INFORMATION
  Report Type: Spontaneous
  Country: CA (occurrence: CA)
  Receive Date: 20221114
  Receipt Date: 20230626
  Transmission Date: 20230722
  Serious: Yes (Hospitalization, Other)
  Sender: FDA-Public Use
  Company Number: CA-PFIZER INC-202200796877

PATIENT
  Age: 68 Year
  Sex: Female

DRUGS (2)
  1. ABRILADA [Suspect]
     Active Substance: ADALIMUMAB-AFZB
     Indication: Psoriatic arthropathy
     Dosage: 40 MG, EVERY 2 WEEK PREFILLED PEN
     Route: 058
     Dates: start: 20220517
  2. METHOTREXATE [Concomitant]
     Active Substance: METHOTREXATE
     Dosage: UNK, STOPPED

REACTIONS (9)
  - Cerebrovascular accident [Recovered/Resolved]
  - Cataract [Unknown]
  - Hypoaesthesia [Recovered/Resolved with Sequelae]
  - Dizziness [Not Recovered/Not Resolved]
  - Disease recurrence [Not Recovered/Not Resolved]
  - Abdominal pain [Recovering/Resolving]
  - Nasopharyngitis [Not Recovered/Not Resolved]
  - Psoriasis [Recovered/Resolved]
  - Pruritus [Not Recovered/Not Resolved]

NARRATIVE: CASE EVENT DATE: 20220101
